FAERS Safety Report 10205730 (Version 2)
Quarter: 2014Q2

REPORT INFORMATION
  Report Type: Spontaneous
  Country: CA (occurrence: CA)
  Receive Date: 20140530
  Receipt Date: 20140530
  Transmission Date: 20141212
  Serious: Yes (Other)
  Sender: FDA-Public Use
  Company Number: CA-AMGEN-CANSP2014031063

PATIENT
  Age: 92 Year
  Sex: Female

DRUGS (8)
  1. PROLIA [Suspect]
     Indication: OSTEOPOROSIS
     Dosage: 60 MG, Q6MO
     Route: 058
     Dates: start: 201310
  2. RAMIPRIL [Suspect]
     Indication: RENAL FAILURE CHRONIC
     Dosage: 5 MG, QD
     Route: 048
  3. RAMIPRIL [Suspect]
     Indication: HYPERTENSION
  4. PROPAFENONE [Suspect]
     Indication: ARRHYTHMIA
     Dosage: 150 MG, BID
     Route: 048
  5. PARIET [Concomitant]
     Indication: GASTROOESOPHAGEAL REFLUX DISEASE
     Dosage: 20 MG, QD
     Route: 048
  6. HYDROXYQUINOLINE [Concomitant]
     Indication: RHEUMATOID ARTHRITIS
     Dosage: 200 MG, QD
     Route: 048
  7. IMOVANE [Concomitant]
     Dosage: 7.5 MG, UNK
     Route: 048
  8. METHOTREXATE [Concomitant]
     Indication: RHEUMATOID ARTHRITIS
     Dosage: 25 MG, QMO
     Route: 048

REACTIONS (10)
  - Presyncope [Unknown]
  - Spinal compression fracture [Recovering/Resolving]
  - Spinal column injury [Recovering/Resolving]
  - Fall [Recovering/Resolving]
  - Dizziness [Not Recovered/Not Resolved]
  - Back injury [Not Recovered/Not Resolved]
  - Spinal pain [Not Recovered/Not Resolved]
  - Thoracic vertebral fracture [Unknown]
  - Pain [Recovering/Resolving]
  - Tension [Recovering/Resolving]
